FAERS Safety Report 21746030 (Version 2)
Quarter: 2023Q1

REPORT INFORMATION
  Report Type: Spontaneous
  Country: US (occurrence: US)
  Receive Date: 20221219
  Receipt Date: 20230224
  Transmission Date: 20230418
  Serious: No
  Sender: FDA-Public Use
  Company Number: US-BIOGEN-2022BI01173662

PATIENT
  Sex: Female

DRUGS (2)
  1. TYSABRI [Suspect]
     Active Substance: NATALIZUMAB
     Indication: Multiple sclerosis
     Route: 050
     Dates: start: 20220712, end: 20221007
  2. TYSABRI [Suspect]
     Active Substance: NATALIZUMAB
     Route: 050
     Dates: start: 20131230, end: 20210526

REACTIONS (2)
  - Menstrual disorder [Unknown]
  - Depression [Unknown]
